FAERS Safety Report 15842226 (Version 1)
Quarter: 2019Q1

REPORT INFORMATION
  Report Type: Spontaneous
  Country: US (occurrence: US)
  Receive Date: 20190117
  Receipt Date: 20190117
  Transmission Date: 20190417
  Serious: Yes (Hospitalization, Other)
  Sender: FDA-Public Use
  Company Number: None

PATIENT
  Age: 67 Year
  Sex: Female
  Weight: 81.45 kg

DRUGS (11)
  1. PANTOPRAZOLE [Suspect]
     Active Substance: PANTOPRAZOLE
     Indication: ULCER
     Dosage: ?          QUANTITY:60 TABLET(S);?
     Route: 048
     Dates: start: 20181225, end: 20181230
  2. ENTRESTO [Concomitant]
     Active Substance: SACUBITRIL\VALSARTAN
  3. METOPROLOL. [Concomitant]
     Active Substance: METOPROLOL
  4. LUTEIN 40 MG (1 PER/WEEK) [Concomitant]
  5. VITAMIN C 500 MG DAILY [Concomitant]
  6. METFORMIN [Concomitant]
     Active Substance: METFORMIN HYDROCHLORIDE
  7. SIMVASTATIN. [Concomitant]
     Active Substance: SIMVASTATIN
  8. BRILINTA [Concomitant]
     Active Substance: TICAGRELOR
  9. OMEGO-3-ACID [Concomitant]
  10. VITAMINS [Concomitant]
     Active Substance: VITAMINS
  11. VITAMIN B12 500 MG DAILY [Concomitant]

REACTIONS (5)
  - Neck pain [None]
  - Performance status decreased [None]
  - Headache [None]
  - Skin exfoliation [None]
  - Musculoskeletal pain [None]

NARRATIVE: CASE EVENT DATE: 20181225
